FAERS Safety Report 23268846 (Version 1)
Quarter: 2023Q4

REPORT INFORMATION
  Report Type: Spontaneous
  Country: DE (occurrence: DE)
  Receive Date: 20231206
  Receipt Date: 20231206
  Transmission Date: 20240110
  Serious: Yes (Other)
  Sender: FDA-Public Use
  Company Number: DE-BEH-2023165939

PATIENT
  Sex: Male

DRUGS (1)
  1. HUMAN COAGULATION FACTOR VIII/VON WILLEBRAND FACTOR COMPLEX [Suspect]
     Active Substance: HUMAN COAGULATION FACTOR VIII/VON WILLEBRAND FACTOR COMPLEX
     Indication: Factor VIII deficiency
     Dosage: 35 INTERNATIONAL UNIT/KILOGRAM
     Route: 065

REACTIONS (2)
  - Von Willebrand^s factor inhibition [Unknown]
  - Factor VIII inhibition [Unknown]
